FAERS Safety Report 25175774 (Version 1)
Quarter: 2025Q2

REPORT INFORMATION
  Report Type: Spontaneous
  Country: CN (occurrence: CN)
  Receive Date: 20250408
  Receipt Date: 20250408
  Transmission Date: 20250717
  Serious: Yes (Hospitalization)
  Sender: BEIGENE
  Company Number: CN-BEIGENE-BGN-2025-005387

PATIENT
  Age: 73 Year
  Weight: 71 kg

DRUGS (28)
  1. TISLELIZUMAB [Suspect]
     Active Substance: TISLELIZUMAB
     Indication: Small cell lung cancer
  2. TISLELIZUMAB [Suspect]
     Active Substance: TISLELIZUMAB
  3. TISLELIZUMAB [Suspect]
     Active Substance: TISLELIZUMAB
     Dosage: 200 MILLIGRAM, Q3WK D1
     Route: 041
  4. TISLELIZUMAB [Suspect]
     Active Substance: TISLELIZUMAB
     Dosage: 200 MILLIGRAM, Q3WK D1
  5. TISLELIZUMAB [Suspect]
     Active Substance: TISLELIZUMAB
     Dosage: 200 MILLIGRAM, Q3WK D1
  6. TISLELIZUMAB [Suspect]
     Active Substance: TISLELIZUMAB
     Dosage: 200 MILLIGRAM, Q3WK D1
     Route: 041
  7. ETOPOSIDE [Suspect]
     Active Substance: ETOPOSIDE
     Indication: Small cell lung cancer
     Dosage: 0.18 GRAM, Q3WK D1-3
  8. ETOPOSIDE [Suspect]
     Active Substance: ETOPOSIDE
     Dosage: 0.18 GRAM, Q3WK D1-3
     Route: 041
  9. ETOPOSIDE [Suspect]
     Active Substance: ETOPOSIDE
  10. ETOPOSIDE [Suspect]
     Active Substance: ETOPOSIDE
     Dosage: 0.18 GRAM, Q3WK D1-3
  11. ETOPOSIDE [Suspect]
     Active Substance: ETOPOSIDE
     Dosage: 0.18 GRAM, Q3WK D1-3
     Route: 041
  12. CARBOPLATIN [Suspect]
     Active Substance: CARBOPLATIN
     Indication: Small cell lung cancer
     Dosage: 500 MILLIGRAM, Q3WK
  13. CARBOPLATIN [Suspect]
     Active Substance: CARBOPLATIN
     Dosage: 500 MILLIGRAM, Q3WK
     Route: 041
  14. CARBOPLATIN [Suspect]
     Active Substance: CARBOPLATIN
  15. CARBOPLATIN [Suspect]
     Active Substance: CARBOPLATIN
     Dosage: 500 MILLIGRAM, Q3WK
  16. CARBOPLATIN [Suspect]
     Active Substance: CARBOPLATIN
     Dosage: 500 MILLIGRAM, Q3WK
     Route: 041
  17. SODIUM CHLORIDE [Concomitant]
     Active Substance: SODIUM CHLORIDE
     Indication: Vehicle solution use
     Dosage: 500 MILLILITER, Q3WK D1-3
  18. SODIUM CHLORIDE [Concomitant]
     Active Substance: SODIUM CHLORIDE
     Dosage: 500 MILLILITER, Q3WK D1-3
     Route: 041
  19. SODIUM CHLORIDE [Concomitant]
     Active Substance: SODIUM CHLORIDE
     Dosage: 500 MILLILITER, Q3WK D1-3
     Route: 041
  20. SODIUM CHLORIDE [Concomitant]
     Active Substance: SODIUM CHLORIDE
     Dosage: 500 MILLILITER, Q3WK D1-3
  21. SODIUM CHLORIDE [Concomitant]
     Active Substance: SODIUM CHLORIDE
     Dosage: 100 MILLILITER, Q3WK D1
     Route: 041
  22. SODIUM CHLORIDE [Concomitant]
     Active Substance: SODIUM CHLORIDE
     Dosage: 100 MILLILITER, Q3WK D1
  23. DEXTROSE [Concomitant]
     Active Substance: DEXTROSE MONOHYDRATE
     Indication: Vehicle solution use
     Dosage: 500 MILLILITER, Q3WK
  24. DEXTROSE [Concomitant]
     Active Substance: DEXTROSE MONOHYDRATE
     Dosage: 500 MILLILITER, Q3WK
     Route: 041
  25. DEXTROSE [Concomitant]
     Active Substance: DEXTROSE MONOHYDRATE
     Dosage: 500 MILLILITER, Q3WK
  26. DEXTROSE [Concomitant]
     Active Substance: DEXTROSE MONOHYDRATE
     Dosage: 500 MILLILITER, Q3WK
     Route: 041
  27. TRILACICLIB [Concomitant]
     Active Substance: TRILACICLIB
     Indication: Prophylaxis
  28. TRILACICLIB [Concomitant]
     Active Substance: TRILACICLIB

REACTIONS (2)
  - Myelosuppression [Recovering/Resolving]
  - Granulocyte count decreased [Recovering/Resolving]
